FAERS Safety Report 18106850 (Version 1)
Quarter: 2020Q3

REPORT INFORMATION
  Report Type: Spontaneous
  Country: FR (occurrence: FR)
  Receive Date: 20200803
  Receipt Date: 20200803
  Transmission Date: 20201103
  Serious: Yes (Death, Hospitalization, Other)
  Sender: FDA-Public Use
  Company Number: FR-JNJFOC-20200739656

PATIENT
  Age: 56 Year
  Sex: Female
  Weight: 135 kg

DRUGS (6)
  1. NOZINAN                            /00038601/ [Suspect]
     Active Substance: LEVOMEPROMAZINE
     Indication: BIPOLAR DISORDER
     Route: 065
  2. NORDIAZEPAM [Suspect]
     Active Substance: NORDAZEPAM
     Indication: PRODUCT USED FOR UNKNOWN INDICATION
     Route: 065
  3. DIAZEPAM. [Suspect]
     Active Substance: DIAZEPAM
     Indication: ANXIETY
     Route: 065
  4. METFORMIN [Concomitant]
     Active Substance: METFORMIN HYDROCHLORIDE
     Route: 065
     Dates: start: 20160301, end: 20160310
  5. HALDOL DEACANOAS [Suspect]
     Active Substance: HALOPERIDOL DECANOATE
     Indication: PRODUCT USED FOR UNKNOWN INDICATION
     Route: 065
  6. NOZINAN                            /00038601/ [Suspect]
     Active Substance: LEVOMEPROMAZINE
     Indication: MANIA
     Route: 065
     Dates: start: 20160301, end: 20160310

REACTIONS (9)
  - Unevaluable event [Unknown]
  - Sleep apnoea syndrome [Unknown]
  - Asphyxia [Fatal]
  - Pulmonary oedema [Fatal]
  - Pulmonary embolism [Fatal]
  - Cyanosis [Fatal]
  - Diabetes mellitus [Unknown]
  - Body temperature increased [Fatal]
  - Overdose [Fatal]
